FAERS Safety Report 6098307-8 (Version None)
Quarter: 2009Q1

REPORT INFORMATION
  Report Type: 
  Country: None (occurrence: None)
  Receive Date: 20090302
  Receipt Date: 20090224
  Transmission Date: 20090719
  Serious: Yes (Other)
  Sender: FDA-Public Use
  Company Number: US-PFIZER INC-2009176275

PATIENT
  Sex: Female
  Weight: 95.238 kg

DRUGS (3)
  1. NICOTROL [Suspect]
     Indication: SMOKING CESSATION THERAPY
     Dates: start: 20060101
  2. LAMICTAL [Concomitant]
     Dosage: UNK
  3. METHADONE HYDROCHLORIDE [Concomitant]
     Dosage: UNK

REACTIONS (5)
  - BLOOD CHOLESTEROL INCREASED [None]
  - BREAST CANCER [None]
  - DYSPEPSIA [None]
  - EXPIRED DRUG ADMINISTERED [None]
  - HYPERTENSION [None]
